FAERS Safety Report 5053077-7 (Version None)
Quarter: 2006Q3

REPORT INFORMATION
  Report Type: 
  Country: None (occurrence: None)
  Receive Date: 20060717
  Receipt Date: 20050708
  Transmission Date: 20061208
  Serious: Yes (Hospitalization)
  Sender: FDA-Public Use
  Company Number: IT-ABBOTT-05P-083-0305385-00

PATIENT
  Age: 24 Year
  Sex: Male

DRUGS (5)
  1. VALPROATE SODIUM [Suspect]
     Indication: GRAND MAL CONVULSION
     Route: 048
  2. VALPROATE SODIUM [Suspect]
  3. LAMOTRIGINE [Interacting]
     Indication: GRAND MAL CONVULSION
     Route: 048
  4. LAMOTRIGINE [Interacting]
  5. LAMOTRIGINE [Interacting]

REACTIONS (8)
  - DRUG INTERACTION [None]
  - DRUG LEVEL DECREASED [None]
  - EYELID OEDEMA [None]
  - INCORRECT DOSE ADMINISTERED [None]
  - OCULAR ICTERUS [None]
  - PYREXIA [None]
  - STEVENS-JOHNSON SYNDROME [None]
  - THERAPY REGIMEN CHANGED [None]
